FAERS Safety Report 5417043-1 (Version None)
Quarter: 2007Q4

REPORT INFORMATION
  Report Type: 
  Country: None (occurrence: None)
  Receive Date: 20070718
  Receipt Date: 20060531
  Transmission Date: 20080405
  Serious: Yes (Hospitalization)
  Sender: FDA-Public Use
  Company Number: 2006059002

PATIENT
  Age: 56 Year
  Sex: Female
  Weight: 63.5036 kg

DRUGS (1)
  1. CELEBREX [Suspect]
     Indication: SPINAL OSTEOARTHRITIS
     Dosage: 800 MG (200 MG, 4 IN 1 D)
     Dates: start: 19980101

REACTIONS (7)
  - ANGINA UNSTABLE [None]
  - CORONARY ARTERY DISEASE [None]
  - DEPRESSION [None]
  - GAIT DISTURBANCE [None]
  - NEOPLASM MALIGNANT [None]
  - SEXUAL DYSFUNCTION [None]
  - ULCER [None]
